FAERS Safety Report 5018249-6 (Version None)
Quarter: 2006Q2

REPORT INFORMATION
  Report Type: 
  Country: None (occurrence: None)
  Receive Date: 20060530
  Receipt Date: 20060518
  Transmission Date: 20061013
  Serious: Yes (Hospitalization, Other)
  Sender: FDA-Public Use
  Company Number: 2006065714

PATIENT
  Age: 61 Year
  Sex: Female
  Weight: 71.6683 kg

DRUGS (4)
  1. LIPITOR [Suspect]
     Indication: BLOOD CHOLESTEROL INCREASED
     Dosage: 10 MG (10 MG, 1 IN 1 D) ORAL
     Route: 048
     Dates: start: 20050101, end: 20060515
  2. SYNTHROID [Concomitant]
  3. VALSARTAN [Concomitant]
  4. CLONAZEPAM [Concomitant]

REACTIONS (12)
  - ABASIA [None]
  - CHEST DISCOMFORT [None]
  - DYSPNOEA [None]
  - EATING DISORDER [None]
  - FLATULENCE [None]
  - GASTRIC DISORDER [None]
  - INFLAMMATION [None]
  - MUSCLE DISORDER [None]
  - MUSCULOSKELETAL DISCOMFORT [None]
  - MYALGIA [None]
  - NAUSEA [None]
  - PAIN IN EXTREMITY [None]
